FAERS Safety Report 19270943 (Version 1)
Quarter: 2021Q2

REPORT INFORMATION
  Report Type: Spontaneous
  Country: PL (occurrence: PL)
  Receive Date: 20210518
  Receipt Date: 20210518
  Transmission Date: 20210717
  Serious: Yes (Other)
  Sender: FDA-Public Use
  Company Number: NVSC2021PL107737

PATIENT
  Age: 61 Year
  Sex: Female

DRUGS (4)
  1. KISQALI [Suspect]
     Active Substance: RIBOCICLIB
     Indication: BREAST CANCER
     Dosage: 600 MG, QD (EVERY  28 DAYS)
     Route: 065
  2. RELANIUM [Concomitant]
     Indication: PRODUCT USED FOR UNKNOWN INDICATION
     Route: 065
  3. KISQALI [Suspect]
     Active Substance: RIBOCICLIB
     Dosage: 400 MG, QD
     Route: 065
  4. ZOLEDRONIC ACID [Suspect]
     Active Substance: ZOLEDRONIC ACID
     Indication: BREAST CANCER
     Route: 065

REACTIONS (11)
  - Transaminases increased [Unknown]
  - Depressed mood [Unknown]
  - Dysphagia [Unknown]
  - Stoma site inflammation [Unknown]
  - Weight decreased [Unknown]
  - Eating disorder [Unknown]
  - Implant site extravasation [Unknown]
  - Pyrexia [Unknown]
  - Asthenia [Unknown]
  - Purulent discharge [Unknown]
  - Hepatotoxicity [Unknown]
